FAERS Safety Report 18533168 (Version 1)
Quarter: 2020Q4

REPORT INFORMATION
  Report Type: Spontaneous
  Country: US (occurrence: US)
  Receive Date: 20201120
  Receipt Date: 20201120
  Transmission Date: 20210114
  Serious: Yes (Hospitalization)
  Sender: FDA-Public Use
  Company Number: None

PATIENT
  Age: 81 Year
  Sex: Male

DRUGS (7)
  1. ELIQUIS [Concomitant]
     Active Substance: APIXABAN
  2. WIXELA INHUB [Concomitant]
     Active Substance: FLUTICASONE PROPIONATE\SALMETEROL XINAFOATE
  3. TYLENOL [Concomitant]
     Active Substance: ACETAMINOPHEN
  4. FAMOTIDINE. [Concomitant]
     Active Substance: FAMOTIDINE
  5. ALBUTEROL INHL NEB SOLN [Concomitant]
     Active Substance: ALBUTEROL
  6. LASIX [Concomitant]
     Active Substance: FUROSEMIDE
  7. ADEMPAS [Suspect]
     Active Substance: RIOCIGUAT
     Indication: PULMONARY HYPERTENSION
     Route: 048
     Dates: start: 202003

REACTIONS (4)
  - Cardiac failure congestive [None]
  - Hypoxia [None]
  - Treatment noncompliance [None]
  - Cor pulmonale acute [None]

NARRATIVE: CASE EVENT DATE: 20201114
